FAERS Safety Report 4462956-0 (Version None)
Quarter: 2004Q3

REPORT INFORMATION
  Report Type: 
  Country: None (occurrence: None)
  Receive Date: 20040927
  Receipt Date: 20040913
  Transmission Date: 20050211
  Serious: Yes (Life-Threatening, Hospitalization)
  Sender: FDA-Public Use
  Company Number: 04P-167-0273253-00

PATIENT
  Age: 61 Year
  Sex: Male

DRUGS (11)
  1. BIAXIN [Suspect]
     Indication: ASTHMA EXACERBATION PROPHYLAXIS
     Dosage: 250 MG, 2 IN 1 D, PER ORAL
     Route: 048
     Dates: start: 20040726, end: 20040729
  2. BIAXIN [Suspect]
     Indication: LOWER RESPIRATORY TRACT INFECTION
     Dosage: 250 MG, 2 IN 1 D, PER ORAL
     Route: 048
     Dates: start: 20040726, end: 20040729
  3. CITALOPRAM [Concomitant]
  4. ZOPICLONE [Concomitant]
  5. ALBUTEROL [Concomitant]
  6. DIHYDROCODEINE [Concomitant]
  7. PREDNISOLONE [Concomitant]
  8. CAPSAICIN [Concomitant]
  9. MORPHINE [Concomitant]
  10. BECLOMETHASONE DIPROPIONATE [Concomitant]
  11. SALMETEROL [Concomitant]

REACTIONS (2)
  - AKATHISIA [None]
  - CONFUSIONAL STATE [None]
